FAERS Safety Report 11314661 (Version 1)
Quarter: 2015Q3

REPORT INFORMATION
  Report Type: Spontaneous
  Country: JP (occurrence: JP)
  Receive Date: 20150727
  Receipt Date: 20150727
  Transmission Date: 20151125
  Serious: Yes (Hospitalization, Other)
  Sender: FDA-Public Use
  Company Number: JP-BAYER-2015-381185

PATIENT
  Sex: Male

DRUGS (2)
  1. PLETAAL [Concomitant]
     Active Substance: CILOSTAZOL
     Indication: PROPHYLAXIS
     Dosage: UNK
     Route: 048
  2. BAYASPIRIN [Suspect]
     Active Substance: ASPIRIN
     Indication: PROPHYLAXIS
     Dosage: UNK
     Route: 048

REACTIONS (6)
  - Musculoskeletal pain [None]
  - Fall [None]
  - Dyspnoea [None]
  - Asphyxia [None]
  - Contusion [None]
  - Traumatic haematoma [None]
